FAERS Safety Report 11088080 (Version 1)
Quarter: 2015Q2

REPORT INFORMATION
  Report Type: Spontaneous
  Country: US (occurrence: US)
  Receive Date: 20150504
  Receipt Date: 20150504
  Transmission Date: 20150821
  Serious: No
  Sender: FDA-Public Use
  Company Number: US-PFIZER INC-2015144160

PATIENT
  Age: 57 Year
  Sex: Male
  Weight: 76 kg

DRUGS (3)
  1. LYRICA [Suspect]
     Active Substance: PREGABALIN
     Indication: BACK PAIN
     Dosage: 50 MG, 2X/DAY
     Route: 048
     Dates: start: 20150417
  2. HUMALOG 75/25 [Concomitant]
     Dosage: 31 IU, DAILY
     Route: 058
  3. HUMALOG [Concomitant]
     Active Substance: INSULIN LISPRO
     Dosage: (SLIDING SCALE)

REACTIONS (5)
  - Dizziness [Recovering/Resolving]
  - Sneezing [Unknown]
  - Rhinorrhoea [Not Recovered/Not Resolved]
  - Paranasal sinus discomfort [Unknown]
  - Throat irritation [Not Recovered/Not Resolved]

NARRATIVE: CASE EVENT DATE: 201504
